FAERS Safety Report 13113130 (Version 1)
Quarter: 2017Q1

REPORT INFORMATION
  Report Type: Spontaneous
  Country: US (occurrence: US)
  Receive Date: 20170112
  Receipt Date: 20170112
  Transmission Date: 20170428
  Serious: Yes (Death)
  Sender: FDA-Public Use
  Company Number: None

PATIENT
  Age: 63 Year
  Sex: Male

DRUGS (1)
  1. NEXAVAR [Suspect]
     Active Substance: SORAFENIB
     Indication: NEOPLASM MALIGNANT
     Route: 048
     Dates: start: 20161202, end: 20170111

REACTIONS (3)
  - Cardiac arrest [None]
  - Malignant neoplasm progression [None]
  - Upper limb fracture [None]

NARRATIVE: CASE EVENT DATE: 20170111
